FAERS Safety Report 21488111 (Version 2)
Quarter: 2022Q4

REPORT INFORMATION
  Report Type: Report from Study
  Country: US (occurrence: US)
  Receive Date: 20221020
  Receipt Date: 20221117
  Transmission Date: 20230112
  Serious: Yes (Death, Other)
  Sender: FDA-Public Use
  Company Number: US-ACADIA PHARMACEUTICALS INC.-ACA-2022-PIM-003513

PATIENT
  Sex: Male

DRUGS (19)
  1. NUPLAZID [Suspect]
     Active Substance: PIMAVANSERIN TARTRATE
     Indication: Parkinson^s disease
     Dosage: 34 MILLIGRAM, QD
     Route: 048
     Dates: start: 20210618, end: 20221009
  2. TYLENOL [Concomitant]
     Active Substance: ACETAMINOPHEN
  3. LIPITOR [Concomitant]
     Active Substance: ATORVASTATIN CALCIUM
  4. CYTOXAN [Concomitant]
     Active Substance: CYCLOPHOSPHAMIDE
  5. DEFERASIROX [Concomitant]
     Active Substance: DEFERASIROX
  6. DONEPEZIL [Concomitant]
     Active Substance: DONEPEZIL
  7. VITAMIN D NOS [Concomitant]
     Active Substance: VITAMIN D NOS
  8. FOLIC ACID [Concomitant]
     Active Substance: FOLIC ACID
  9. LISINOPRIL [Concomitant]
     Active Substance: LISINOPRIL
  10. MELATONIN [Concomitant]
     Active Substance: MELATONIN
  11. NAMENDA [Concomitant]
     Active Substance: MEMANTINE HYDROCHLORIDE
  12. SEROQUEL [Concomitant]
     Active Substance: QUETIAPINE FUMARATE
  13. OMEGA-3 FATTY ACIDS [Concomitant]
     Active Substance: OMEGA-3 FATTY ACIDS
  14. VITAMIN B12 [Concomitant]
     Active Substance: CYANOCOBALAMIN
  15. VITAMIN B6 [Concomitant]
     Active Substance: PYRIDOXINE HYDROCHLORIDE
  16. .ALPHA.-TOCOPHEROL [Concomitant]
     Active Substance: .ALPHA.-TOCOPHEROL
  17. DEXTROMETHORPHAN\GUAIFENESIN [Concomitant]
     Active Substance: DEXTROMETHORPHAN\GUAIFENESIN
  18. MUCUS RELIEF [Concomitant]
     Active Substance: GUAIFENESIN
  19. ZOLOFT [Concomitant]
     Active Substance: SERTRALINE HYDROCHLORIDE

REACTIONS (1)
  - Leukaemia [Recovered/Resolved]
